FAERS Safety Report 5263356-6 (Version None)
Quarter: 2007Q1

REPORT INFORMATION
  Report Type: 
  Country: None (occurrence: None)
  Receive Date: 20070313
  Receipt Date: 20070305
  Transmission Date: 20070707
  Serious: No
  Sender: FDA-Public Use
  Company Number: US-BAXTER-2007BH002646

PATIENT
  Age: 43 Year
  Sex: Male
  Weight: 109 kg

DRUGS (6)
  1. FENTANYL CITRATE [Suspect]
     Indication: PREMEDICATION
     Route: 042
     Dates: start: 20070129, end: 20070129
  2. MIDAZOLAM HCL [Suspect]
     Indication: PREMEDICATION
     Route: 042
     Dates: start: 20070129, end: 20070129
  3. CANGRELOR [Concomitant]
     Indication: DRUG USE FOR UNKNOWN INDICATION
     Route: 042
     Dates: start: 20070129, end: 20070129
  4. CLOPIDOGREL [Concomitant]
     Indication: DRUG USE FOR UNKNOWN INDICATION
     Route: 048
     Dates: start: 20070129, end: 20070129
  5. HEPARIN [Concomitant]
     Indication: DRUG USE FOR UNKNOWN INDICATION
     Dosage: DOSE UNIT:UNKNOWN
     Route: 065
  6. EPTIFIBATIDE [Concomitant]
     Indication: DRUG USE FOR UNKNOWN INDICATION
     Dosage: DOSE UNIT:UNKNOWN
     Route: 065

REACTIONS (1)
  - SYNCOPE VASOVAGAL [None]
